FAERS Safety Report 9999812 (Version 1)
Quarter: 2014Q1

REPORT INFORMATION
  Report Type: Spontaneous
  Country: GB (occurrence: GB)
  Receive Date: 20140312
  Receipt Date: 20140312
  Transmission Date: 20141002
  Serious: Yes (Hospitalization)
  Sender: FDA-Public Use
  Company Number: GB-PFIZER INC-2014064758

PATIENT
  Age: 40 Year
  Sex: Male

DRUGS (6)
  1. SULFASALAZINE [Suspect]
     Route: 048
  2. 6-MERCAPTOPURINE [Suspect]
     Dosage: UNK
     Route: 048
  3. PENTASA [Suspect]
     Dosage: UNK
     Route: 048
  4. CO-CODAMOL [Concomitant]
     Dosage: UNK
  5. DIFFLAM [Concomitant]
     Dosage: UNK (SPRAY)
  6. PENICILLIN V [Concomitant]
     Dosage: UNK

REACTIONS (4)
  - Rash [Unknown]
  - Liver function test abnormal [Unknown]
  - Neutropenic sepsis [Unknown]
  - Hepatitis [Unknown]
